FAERS Safety Report 21009437 (Version 1)
Quarter: 2022Q2

REPORT INFORMATION
  Report Type: Spontaneous
  Country: US (occurrence: US)
  Receive Date: 20220627
  Receipt Date: 20220627
  Transmission Date: 20220721
  Serious: Yes (Other)
  Sender: FDA-Public Use
  Company Number: US-REGENERON PHARMACEUTICALS, INC.-2022-083322

PATIENT
  Sex: Male

DRUGS (1)
  1. LIBTAYO [Suspect]
     Active Substance: CEMIPLIMAB-RWLC
     Indication: Product used for unknown indication
     Dosage: UNK
     Dates: start: 2021

REACTIONS (6)
  - Deafness unilateral [Unknown]
  - Rash [Unknown]
  - Dry mouth [Unknown]
  - Lip dry [Unknown]
  - Middle ear effusion [Unknown]
  - Eczema [Unknown]
